FAERS Safety Report 4775309-2 (Version None)
Quarter: 2005Q3

REPORT INFORMATION
  Report Type: 
  Country: None (occurrence: None)
  Receive Date: 20050914
  Receipt Date: 20050729
  Transmission Date: 20060218
  Serious: Yes (Disabling)
  Sender: FDA-Public Use
  Company Number: S05-USA-03754-01

PATIENT
  Age: 80 Year
  Sex: Male

DRUGS (9)
  1. LEXAPRO [Suspect]
     Indication: DEPRESSION
     Dates: start: 20050601, end: 20050701
  2. DIGOXIN [Concomitant]
  3. COUMADIN [Concomitant]
  4. ALTACE [Concomitant]
  5. PRAVACHOL [Concomitant]
  6. ALLOPURINOL [Concomitant]
  7. SYNTHROID [Concomitant]
  8. LASIX [Concomitant]
  9. SINGULAIR [Concomitant]

REACTIONS (2)
  - DEPRESSION [None]
  - DIPLOPIA [None]
